FAERS Safety Report 16877865 (Version 1)
Quarter: 2019Q4

REPORT INFORMATION
  Report Type: Report from Study
  Country: MX (occurrence: MX)
  Receive Date: 20191002
  Receipt Date: 20191002
  Transmission Date: 20200122
  Serious: Yes (Other)
  Sender: FDA-Public Use
  Company Number: PHHY2019MX220437

PATIENT
  Sex: Female
  Weight: 92 kg

DRUGS (1)
  1. COSENTYX [Suspect]
     Active Substance: SECUKINUMAB
     Indication: PSORIATIC ARTHROPATHY
     Dosage: 150 MG, EVERY 15 DAYS
     Route: 058

REACTIONS (3)
  - Mastitis [Recovered/Resolved]
  - Infection [Unknown]
  - Product prescribing error [Unknown]
